FAERS Safety Report 9380560 (Version 2)
Quarter: 2013Q3

REPORT INFORMATION
  Report Type: Spontaneous
  Country: IT (occurrence: IT)
  Receive Date: 20130702
  Receipt Date: 20130808
  Transmission Date: 20140515
  Serious: Yes (Other)
  Sender: FDA-Public Use
  Company Number: IT-PFIZER INC-2013192039

PATIENT
  Age: 52 Year
  Sex: Female

DRUGS (1)
  1. DALACIN C [Suspect]
     Indication: PELVIC ABSCESS
     Dosage: 3 DF, 1X/DAY
     Route: 048
     Dates: start: 20130613, end: 20130622

REACTIONS (3)
  - Angioedema [Unknown]
  - Urticaria [Unknown]
  - Oedema peripheral [Unknown]
